FAERS Safety Report 22258757 (Version 1)
Quarter: 2023Q2

REPORT INFORMATION
  Report Type: Spontaneous
  Country: NL (occurrence: NL)
  Receive Date: 20230427
  Receipt Date: 20230427
  Transmission Date: 20230721
  Serious: Yes (Death, Hospitalization, Other)
  Sender: FDA-Public Use
  Company Number: NL-Clinigen Group PLC/ Clinigen Healthcare Ltd-NL-CLGN-23-00176

PATIENT
  Age: 61 Year
  Sex: Female

DRUGS (3)
  1. FOSCARNET SODIUM [Suspect]
     Active Substance: FOSCARNET SODIUM
     Indication: Oral herpes
  2. ACYCLOVIR [Suspect]
     Active Substance: ACYCLOVIR
     Indication: Oral herpes
  3. PRITELIVIR [Suspect]
     Active Substance: PRITELIVIR
     Indication: Oral herpes

REACTIONS (6)
  - Pneumonia viral [Fatal]
  - Pulmonary toxicity [Fatal]
  - Respiratory failure [Fatal]
  - Renal impairment [Fatal]
  - Drug resistance [Unknown]
  - Off label use [Unknown]
